FAERS Safety Report 5089916-3 (Version None)
Quarter: 2006Q3

REPORT INFORMATION
  Report Type: 
  Country: None (occurrence: None)
  Receive Date: 20060828
  Receipt Date: 20060822
  Transmission Date: 20061208
  Serious: Yes (Death)
  Sender: FDA-Public Use
  Company Number: PHBS2006BR12776

PATIENT
  Age: 78 Year
  Sex: Female

DRUGS (1)
  1. PARLODEL [Suspect]
     Indication: PARKINSON'S DISEASE
     Dosage: 7.5 MG, TID
     Route: 048
     Dates: start: 20020101

REACTIONS (1)
  - DEATH [None]
